FAERS Safety Report 5365463-6 (Version None)
Quarter: 2007Q2

REPORT INFORMATION
  Report Type: 
  Country: None (occurrence: None)
  Receive Date: 20070530
  Receipt Date: 20070110
  Transmission Date: 20071010
  Serious: No
  Sender: FDA-Public Use
  Company Number: 2006PV017558

PATIENT
  Age: 58 Year
  Sex: Male
  Weight: 84.369 kg

DRUGS (12)
  1. BYETTA [Suspect]
     Indication: DIABETES MELLITUS NON-INSULIN-DEPENDENT
     Dosage: 10 MCG; BID; SC, 5 MCG; BID; SC, 10 MCG; BID; SC, 5 MCG; BID; SC
     Route: 058
     Dates: start: 20060401, end: 20060101
  2. BYETTA [Suspect]
     Indication: DIABETES MELLITUS NON-INSULIN-DEPENDENT
     Dosage: 10 MCG; BID; SC, 5 MCG; BID; SC, 10 MCG; BID; SC, 5 MCG; BID; SC
     Route: 058
     Dates: start: 20060101, end: 20060201
  3. BYETTA [Suspect]
     Indication: DIABETES MELLITUS NON-INSULIN-DEPENDENT
     Dosage: 10 MCG; BID; SC, 5 MCG; BID; SC, 10 MCG; BID; SC, 5 MCG; BID; SC
     Route: 058
     Dates: start: 20060201
  4. BYETTA [Suspect]
     Indication: DIABETES MELLITUS NON-INSULIN-DEPENDENT
     Dosage: 10 MCG; BID; SC, 5 MCG; BID; SC, 10 MCG; BID; SC, 5 MCG; BID; SC
     Route: 058
     Dates: start: 20060501
  5. BYETTA [Suspect]
  6. ARTHROTEC [Suspect]
     Indication: PAIN
     Dosage: 75 MG; QD; PO
     Route: 048
     Dates: start: 20061201, end: 20061201
  7. GLUCOPHAGE [Concomitant]
  8. PRAVACHOL [Concomitant]
  9. ASPIRIN [Concomitant]
  10. LASIX [Concomitant]
  11. GLUCOTROL [Concomitant]
  12. ALTACE [Concomitant]

REACTIONS (18)
  - ABDOMINAL DISTENSION [None]
  - ABDOMINAL PAIN UPPER [None]
  - ERUCTATION [None]
  - FEELING HOT [None]
  - FLUID RETENTION [None]
  - INFLUENZA LIKE ILLNESS [None]
  - INJECTION SITE EXTRAVASATION [None]
  - JOINT INJURY [None]
  - JOINT SWELLING [None]
  - LETHARGY [None]
  - MALAISE [None]
  - NAUSEA [None]
  - PAIN [None]
  - PYREXIA [None]
  - REGURGITATION [None]
  - STOMACH DISCOMFORT [None]
  - VOMITING [None]
  - WEIGHT DECREASED [None]
